FAERS Safety Report 6314723-0 (Version None)
Quarter: 2009Q3

REPORT INFORMATION
  Report Type: 
  Country: None (occurrence: None)
  Receive Date: 20090819
  Receipt Date: 20090807
  Transmission Date: 20100115
  Serious: Yes (Hospitalization)
  Sender: FDA-Public Use
  Company Number: RO-ELI_LILLY_AND_COMPANY-RO200908001590

PATIENT
  Sex: Female
  Weight: 106 kg

DRUGS (4)
  1. LISPRO REGLISPRO [Suspect]
     Indication: TYPE 2 DIABETES MELLITUS
     Dosage: 18 UI, 3/D
     Route: 058
     Dates: start: 20090729
  2. LISPRO NPL [Suspect]
     Indication: TYPE 2 DIABETES MELLITUS
     Dosage: 16 D/F, DAILY (1/D)
     Route: 058
     Dates: start: 20090729
  3. ENAP [Concomitant]
     Indication: HYPERTENSION
     Dates: start: 20050101
  4. DILATAN [Concomitant]
     Indication: PROPHYLAXIS
     Dates: start: 20050101

REACTIONS (1)
  - DIABETES MELLITUS INADEQUATE CONTROL [None]
